FAERS Safety Report 9617632 (Version 3)
Quarter: 2013Q4

REPORT INFORMATION
  Report Type: Report from Study
  Country: GB (occurrence: GB)
  Receive Date: 20131011
  Receipt Date: 20131118
  Transmission Date: 20140711
  Serious: Yes (Hospitalization)
  Sender: FDA-Public Use
  Company Number: GB-ABBVIE-13P-167-1154971-00

PATIENT
  Age: 44 Year
  Sex: Male

DRUGS (5)
  1. HUMIRA [Suspect]
     Indication: COLITIS ULCERATIVE
     Dosage: BASELINE
     Route: 058
     Dates: start: 20130717, end: 20130717
  2. HUMIRA [Suspect]
     Dosage: WEEK 2
     Route: 058
     Dates: start: 20130801, end: 20130801
  3. HUMIRA [Suspect]
     Route: 058
     Dates: end: 20130918
  4. AZATHIOPRIN [Concomitant]
     Indication: COLITIS ULCERATIVE
     Route: 048
     Dates: start: 20100520
  5. SALOFALK [Concomitant]
     Indication: COLITIS ULCERATIVE
     Route: 054
     Dates: start: 20130704, end: 20130717

REACTIONS (1)
  - Testicular seminoma (pure) [Not Recovered/Not Resolved]
